FAERS Safety Report 25856428 (Version 1)
Quarter: 2025Q3

REPORT INFORMATION
  Report Type: Report from Study
  Country: US (occurrence: US)
  Receive Date: 20250929
  Receipt Date: 20250929
  Transmission Date: 20251021
  Serious: Yes (Other)
  Sender: BAUSCH AND LOMB
  Company Number: US-BAUSCHBL-2025BNL028986

PATIENT
  Age: 60 Year
  Sex: Female

DRUGS (2)
  1. MIEBO [Suspect]
     Active Substance: PERFLUOROHEXYLOCTANE
     Indication: Product used for unknown indication
     Dosage: INSTILL 1 DROP INTO BOTH EYES FOUR TIMES A DAY
     Route: 047
  2. RETAINE MGD (PF) [Concomitant]
     Indication: Product used for unknown indication

REACTIONS (3)
  - Eye operation [Unknown]
  - Eye irritation [Unknown]
  - Therapy interrupted [Unknown]
